FAERS Safety Report 24324949 (Version 1)
Quarter: 2024Q3

REPORT INFORMATION
  Report Type: Spontaneous
  Country: US (occurrence: US)
  Receive Date: 20240916
  Receipt Date: 20240916
  Transmission Date: 20241016
  Serious: No
  Sender: ELI LILLY AND CO
  Company Number: US-ELI_LILLY_AND_COMPANY-US202408018469

PATIENT
  Age: 52 Year
  Sex: Female

DRUGS (2)
  1. TRULICITY [Suspect]
     Active Substance: DULAGLUTIDE
     Indication: Product used for unknown indication
     Dosage: 0.75 MG, DAILY(EVERY MORNING)
     Route: 065
     Dates: start: 202406
  2. METFORMIN [Concomitant]
     Active Substance: METFORMIN HYDROCHLORIDE
     Indication: Blood glucose
     Dosage: 500 MG, BID
     Route: 065

REACTIONS (11)
  - Fall [Unknown]
  - Weight increased [Unknown]
  - Tremor [Unknown]
  - Dizziness [Unknown]
  - Sleep disorder [Unknown]
  - Pulse absent [Unknown]
  - Reading disorder [Unknown]
  - Inappropriate schedule of product administration [Unknown]
  - Blood glucose increased [Unknown]
  - Glycosylated haemoglobin increased [Unknown]
  - Overdose [Unknown]

NARRATIVE: CASE EVENT DATE: 20240601
